FAERS Safety Report 9451449 (Version 1)
Quarter: 2013Q3

REPORT INFORMATION
  Report Type: Report from Study
  Country: IN (occurrence: IN)
  Receive Date: 20130809
  Receipt Date: 20130809
  Transmission Date: 20140515
  Serious: Yes (Other)
  Sender: FDA-Public Use
  Company Number: IN-ROCHE-1259346

PATIENT
  Age: 62 Year
  Sex: Female

DRUGS (5)
  1. LUCENTIS [Suspect]
     Indication: AGE-RELATED MACULAR DEGENERATION
     Dosage: (0.5 MG/100 ML)?IN RIGHT EYE
     Route: 050
  2. LUCENTIS [Suspect]
     Dosage: (0.5 MG/100 ML)
     Route: 050
  3. AMLONG (INDIA) [Concomitant]
     Indication: HYPERTENSION
     Route: 065
  4. FLUCON [Concomitant]
     Indication: DEPRESSION
     Route: 065
  5. REFRESH TEARS [Concomitant]
     Route: 065

REACTIONS (5)
  - Eye haemorrhage [Unknown]
  - Visual impairment [Unknown]
  - Optic nerve injury [Unknown]
  - Eye swelling [Recovering/Resolving]
  - Eye infection [Recovering/Resolving]
